FAERS Safety Report 20567536 (Version 11)
Quarter: 2023Q4

REPORT INFORMATION
  Report Type: Spontaneous
  Country: US (occurrence: US)
  Receive Date: 20220308
  Receipt Date: 20231113
  Transmission Date: 20240109
  Serious: Yes (Other)
  Sender: FDA-Public Use
  Company Number: US-PFIZER INC-202200063816

PATIENT
  Age: 67 Year
  Sex: Female
  Weight: 47.63 kg

DRUGS (8)
  1. IBRANCE [Suspect]
     Active Substance: PALBOCICLIB
     Indication: Breast cancer female
     Dosage: 125 MG, 2 WEEKS ON AND 2 WEEKS OFF
     Dates: start: 20210701
  2. IBRANCE [Suspect]
     Active Substance: PALBOCICLIB
     Dosage: 125 MG, 2 WEEKS ON AND 2 WEEKS OFF
     Dates: start: 20220101
  3. IBRANCE [Suspect]
     Active Substance: PALBOCICLIB
     Dosage: 125 MG, DAILY FOR 14 DAYS ON AND 14 DAYS OFF
     Dates: start: 20220112, end: 20230620
  4. IBRANCE [Suspect]
     Active Substance: PALBOCICLIB
     Dosage: 100 MG, 2 WEEKS ON AND 2 WEEKS OFF
  5. IBRANCE [Suspect]
     Active Substance: PALBOCICLIB
     Dosage: 125 MG, CYCLIC (1 TABLET DAILY FOR 14 DAYS TAKE (1) 125MG TABLET BY MOUTH DAILY X 14)
     Route: 048
  6. FOLIC ACID [Concomitant]
     Active Substance: FOLIC ACID
     Dosage: UNK
  7. DULOXETINE [Concomitant]
     Active Substance: DULOXETINE
     Dosage: 30 MG
  8. LISINOPRIL [Concomitant]
     Active Substance: LISINOPRIL
     Dosage: 5 MG

REACTIONS (11)
  - Systemic lupus erythematosus [Unknown]
  - Neutropenia [Unknown]
  - Foreign body in throat [Unknown]
  - Product use complaint [Unknown]
  - Product size issue [Unknown]
  - Choking [Unknown]
  - Dysphagia [Unknown]
  - Inappropriate schedule of product administration [Unknown]
  - Red blood cell count decreased [Unknown]
  - White blood cell count decreased [Unknown]
  - Exostosis [Unknown]
